FAERS Safety Report 22349329 (Version 1)
Quarter: 2023Q2

REPORT INFORMATION
  Report Type: Spontaneous
  Country: NL (occurrence: NL)
  Receive Date: 20230522
  Receipt Date: 20230522
  Transmission Date: 20230721
  Serious: Yes (Hospitalization)
  Sender: FDA-Public Use
  Company Number: None

PATIENT
  Sex: Female
  Weight: 57 kg

DRUGS (1)
  1. PREDNISONE [Suspect]
     Active Substance: PREDNISONE
     Indication: Polymyalgia rheumatica
     Dosage: 15 MILLIGRAM DAILY; 1 PIECE 3 TIMES A DAY, BRAND NAME NOT SPECIFIED
     Route: 065
     Dates: start: 20220403, end: 20220518

REACTIONS (1)
  - Mania [Recovered/Resolved]
